FAERS Safety Report 9382472 (Version 3)
Quarter: 2013Q4

REPORT INFORMATION
  Report Type: Spontaneous
  Country: US (occurrence: US)
  Receive Date: 20130703
  Receipt Date: 20131230
  Transmission Date: 20140711
  Serious: Yes (Death, Hospitalization)
  Sender: FDA-Public Use
  Company Number: US-UCBSA-090379

PATIENT
  Age: 73 Year
  Sex: Male

DRUGS (1)
  1. CIMZIA [Suspect]
     Indication: RHEUMATOID ARTHRITIS
     Dates: start: 20130304

REACTIONS (5)
  - Pain [Unknown]
  - Death [Fatal]
  - Bone cancer [Not Recovered/Not Resolved]
  - Malaise [Unknown]
  - Asthenia [Unknown]
